FAERS Safety Report 5701038-4 (Version None)
Quarter: 2008Q2

REPORT INFORMATION
  Report Type: 
  Country: None (occurrence: None)
  Receive Date: 20080410
  Receipt Date: 20080407
  Transmission Date: 20081010
  Serious: Yes (Death)
  Sender: FDA-Public Use
  Company Number: US-WYE-H03398608

PATIENT
  Age: 57 Year
  Sex: Male

DRUGS (1)
  1. TIGECYCLINE [Suspect]
     Dosage: UNKNOWN DOSE

REACTIONS (1)
  - PANCREATITIS [None]
